FAERS Safety Report 9032465 (Version 1)
Quarter: 2013Q1

REPORT INFORMATION
  Report Type: Spontaneous
  Country: SE (occurrence: SE)
  Receive Date: 20130125
  Receipt Date: 20130125
  Transmission Date: 20140127
  Serious: Yes (Other)
  Sender: FDA-Public Use
  Company Number: SE-GLAXOSMITHKLINE-B0862008A

PATIENT
  Age: 0 Year
  Sex: Male

DRUGS (9)
  1. BETNOVATE [Suspect]
     Indication: ECZEMA
     Route: 064
  2. LORATADIN [Suspect]
     Indication: PRODUCT USED FOR UNKNOWN INDICATION
     Dosage: 10MG PER DAY
     Route: 064
  3. LOCOID [Suspect]
     Indication: PRODUCT USED FOR UNKNOWN INDICATION
     Route: 064
  4. LEVAXIN [Suspect]
     Indication: PRODUCT USED FOR UNKNOWN INDICATION
     Dosage: 150MCG PER DAY
     Route: 064
  5. RHINOCORT AQUA [Concomitant]
     Route: 064
  6. NIFEREX [Concomitant]
     Route: 064
  7. GAVISCON [Concomitant]
     Route: 064
  8. KAVEPENIN [Concomitant]
     Route: 064
  9. MILDISON [Concomitant]
     Route: 064

REACTIONS (1)
  - Congenital genitourinary abnormality [Recovered/Resolved with Sequelae]
